FAERS Safety Report 8451027-4 (Version None)
Quarter: 2012Q2

REPORT INFORMATION
  Report Type: 
  Country: None (occurrence: None)
  Receive Date: 20120613
  Receipt Date: 20120530
  Transmission Date: 20120825
  Serious: No
  Sender: FDA-Public Use
  Company Number: 2012SP024034

PATIENT
  Age: 59 Year
  Sex: Male

DRUGS (5)
  1. TRIAMTERENE AND HYDROCHLOROTHIAZIDE [Concomitant]
  2. NASONEX [Suspect]
     Indication: SLEEP APNOEA SYNDROME
     Dosage: 1 DF;BID;NAS
     Route: 045
     Dates: start: 20070101
  3. NIASPAN [Concomitant]
  4. SALSALATE [Concomitant]
  5. PANTOPRAZOLE [Concomitant]

REACTIONS (2)
  - NO ADVERSE EVENT [None]
  - OFF LABEL USE [None]
